FAERS Safety Report 18798169 (Version 1)
Quarter: 2021Q1

REPORT INFORMATION
  Report Type: Spontaneous
  Country: US (occurrence: US)
  Receive Date: 20210127
  Receipt Date: 20210127
  Transmission Date: 20210419
  Serious: Yes (Death)
  Sender: FDA-Public Use
  Company Number: None

PATIENT
  Age: 58 Year
  Sex: Female

DRUGS (15)
  1. AMOXICILLIN. [Concomitant]
     Active Substance: AMOXICILLIN
  2. FOLIC ACID. [Concomitant]
     Active Substance: FOLIC ACID
  3. METFORMIN [Concomitant]
     Active Substance: METFORMIN HYDROCHLORIDE
  4. POT CHLORIDE ER [Concomitant]
  5. XELJANZ XR [Suspect]
     Active Substance: TOFACITINIB CITRATE
     Indication: RHEUMATOID ARTHRITIS
     Route: 048
     Dates: start: 20190504
  6. CELECOXIB. [Concomitant]
     Active Substance: CELECOXIB
  7. CLONIDINE. [Concomitant]
     Active Substance: CLONIDINE
  8. METOPROL SUC ER [Concomitant]
     Active Substance: METOPROLOL SUCCINATE
  9. IBUPROFEN. [Concomitant]
     Active Substance: IBUPROFEN
  10. LOSARTAN POT [Concomitant]
     Active Substance: LOSARTAN POTASSIUM
  11. HYDROCHLOROT [Concomitant]
     Active Substance: HYDROCHLOROTHIAZIDE
  12. AMLODIPINE [Concomitant]
     Active Substance: AMLODIPINE BESYLATE
  13. GLIPIZIDE. [Concomitant]
     Active Substance: GLIPIZIDE
  14. HYDROXYCHLOR [Concomitant]
     Active Substance: HYDROXYCHLOROQUINE
  15. VITAMIN D [Concomitant]
     Active Substance: VITAMIN D NOS

REACTIONS (1)
  - Death [None]

NARRATIVE: CASE EVENT DATE: 20210126
